FAERS Safety Report 5005183-0 (Version None)
Quarter: 2006Q2

REPORT INFORMATION
  Report Type: 
  Country: None (occurrence: None)
  Receive Date: 20060518
  Receipt Date: 20060503
  Transmission Date: 20061013
  Serious: Yes (Hospitalization)
  Sender: FDA-Public Use
  Company Number: 2006CG00805

PATIENT
  Age: 36 Year
  Sex: Male

DRUGS (3)
  1. NEXIUM [Suspect]
     Route: 042
     Dates: start: 20060201, end: 20060228
  2. FOSFOCINE [Suspect]
     Indication: PSEUDOMONAL SEPSIS
     Route: 042
     Dates: start: 20060207, end: 20060228
  3. TIENAM [Suspect]
     Indication: PSEUDOMONAL SEPSIS
     Route: 042
     Dates: start: 20060201, end: 20060228

REACTIONS (2)
  - LEUKOPENIA [None]
  - NEUTROPENIA [None]
